FAERS Safety Report 19986025 (Version 2)
Quarter: 2022Q1

REPORT INFORMATION
  Report Type: Report from Study
  Country: CA (occurrence: CA)
  Receive Date: 20211022
  Receipt Date: 20220131
  Transmission Date: 20220423
  Serious: Yes (Death, Other)
  Sender: FDA-Public Use
  Company Number: CA-BRISTOL-MYERS SQUIBB COMPANY-BMS-2021-095913

PATIENT
  Age: 65 Year
  Sex: Female
  Weight: 65 kg

DRUGS (3)
  1. NIVOLUMAB [Suspect]
     Active Substance: NIVOLUMAB
     Indication: Non-small cell lung cancer
     Dosage: 360 MILLIGRAM, Q3WK
     Route: 042
     Dates: start: 20210906
  2. YERVOY [Suspect]
     Active Substance: IPILIMUMAB
     Indication: Non-small cell lung cancer
     Dosage: 65 MILLIGRAM, Q6WK
     Route: 042
     Dates: start: 20210906
  3. YERVOY [Suspect]
     Active Substance: IPILIMUMAB
     Dosage: 1 MILLIGRAM/KILOGRAM, Q3WK
     Route: 042

REACTIONS (7)
  - Metastases to central nervous system [Fatal]
  - Brain oedema [Unknown]
  - Fatigue [Unknown]
  - Muscular weakness [Unknown]
  - Arthralgia [Unknown]
  - Condition aggravated [Unknown]
  - Intentional product use issue [Unknown]

NARRATIVE: CASE EVENT DATE: 20210907
